FAERS Safety Report 15449278 (Version 1)
Quarter: 2018Q4

REPORT INFORMATION
  Report Type: Spontaneous
  Country: US (occurrence: US)
  Receive Date: 20181001
  Receipt Date: 20181001
  Transmission Date: 20190204
  Serious: No
  Sender: FDA-Public Use
  Company Number: US-JNJFOC-20180920911

PATIENT
  Age: 76 Year
  Sex: Male

DRUGS (1)
  1. ZYTIGA [Suspect]
     Active Substance: ABIRATERONE ACETATE
     Indication: PROSTATE CANCER
     Route: 048
     Dates: start: 20180716

REACTIONS (4)
  - Skin haemorrhage [Unknown]
  - Contusion [Unknown]
  - Pain [Not Recovered/Not Resolved]
  - Skin atrophy [Unknown]

NARRATIVE: CASE EVENT DATE: 2018
